FAERS Safety Report 19866987 (Version 1)
Quarter: 2021Q3

REPORT INFORMATION
  Report Type: Spontaneous
  Country: JP (occurrence: JP)
  Receive Date: 20210922
  Receipt Date: 20210922
  Transmission Date: 20211014
  Serious: Yes (Other)
  Sender: FDA-Public Use
  Company Number: JP-STRIDES ARCOLAB LIMITED-2021SP027920

PATIENT
  Age: 3 Year
  Sex: Female

DRUGS (1)
  1. TACROLIMUS. [Suspect]
     Active Substance: TACROLIMUS
     Indication: LIVER TRANSPLANT
     Dosage: UNK
     Route: 048

REACTIONS (3)
  - Anorectal human papilloma virus infection [Recovered/Resolved]
  - Anogenital warts [Recovered/Resolved]
  - Quality of life decreased [Unknown]
